FAERS Safety Report 14620596 (Version 1)
Quarter: 2018Q1

REPORT INFORMATION
  Report Type: Spontaneous
  Country: GB (occurrence: GB)
  Receive Date: 20180309
  Receipt Date: 20180309
  Transmission Date: 20180509
  Serious: Yes (Other)
  Sender: FDA-Public Use
  Company Number: GB-B. BRAUN MEDICAL INC.-2043461

PATIENT
  Age: 7 Year
  Sex: Male

DRUGS (9)
  1. POTASSIUM CHLORIDE FOR INJECTION CONCENTRATE USP 0264-1940-20 [Suspect]
     Active Substance: POTASSIUM CHLORIDE
     Indication: PARENTERAL NUTRITION
     Route: 051
  2. AMINOVEN 15% [Suspect]
     Active Substance: AMINO ACIDS
     Route: 051
  3. PEDITRACE [Suspect]
     Active Substance: CUPRIC CHLORIDE\MANGANESE CHLORIDE\POTASSIUM IODIDE\SODIUM FLUORIDE\SODIUM SELENITE\ZINC CHLORIDE
  4. SMOFLIPID [Suspect]
     Active Substance: FISH OIL\MEDIUM-CHAIN TRIGLYCERIDES\OLIVE OIL\SOYBEAN OIL
     Route: 051
  5. SODIUM GLYCEROPHOSPHATE [Suspect]
     Active Substance: SODIUM GLYCEROPHOSPHATE
     Route: 051
  6. VITALIPID INFANT [Suspect]
     Active Substance: ERGOCALCIFEROL\PHYTONADIONE\TOCOPHEROL\VITAMIN A PALMITATE
     Route: 051
  7. GLUCOSE 50% [Suspect]
     Active Substance: DEXTROSE
     Route: 051
  8. SOLUVIT N [Suspect]
     Active Substance: VITAMINS
     Route: 051
  9. WATER FOR INJECTION [Suspect]
     Active Substance: WATER
     Route: 051

REACTIONS (3)
  - Diarrhoea [None]
  - Device related sepsis [None]
  - Vomiting [None]
